FAERS Safety Report 18274445 (Version 2)
Quarter: 2022Q2

REPORT INFORMATION
  Report Type: Spontaneous
  Country: US (occurrence: US)
  Receive Date: 20200916
  Receipt Date: 20220520
  Transmission Date: 20220720
  Serious: Yes (Other)
  Sender: FDA-Public Use
  Company Number: US-SAARTEMIS-SAC202009140462

PATIENT
  Age: 53 Year
  Sex: Female

DRUGS (1)
  1. ZANTAC [Suspect]
     Active Substance: RANITIDINE HYDROCHLORIDE
     Indication: Gastric ulcer
     Dosage: UNK UNK, QD
     Dates: start: 201103, end: 201510

REACTIONS (1)
  - Gastric cancer stage II [Recovering/Resolving]

NARRATIVE: CASE EVENT DATE: 20151001
